FAERS Safety Report 6887449-2 (Version None)
Quarter: 2010Q3

REPORT INFORMATION
  Report Type: 
  Country: None (occurrence: None)
  Receive Date: 20100730
  Receipt Date: 20100723
  Transmission Date: 20110219
  Serious: Yes (Hospitalization, Other)
  Sender: FDA-Public Use
  Company Number: US-SANOFI-AVENTIS-A03200606642

PATIENT
  Age: 74 Year
  Sex: Female
  Weight: 55 kg

DRUGS (21)
  1. PLAVIX [Suspect]
     Dosage: UNIT DOSE: 75 MG
     Route: 048
     Dates: start: 20030701, end: 20051001
  2. PLAVIX [Suspect]
     Dosage: UNIT DOSE: 75 MG
     Route: 048
     Dates: start: 20030701, end: 20051001
  3. PLAVIX [Suspect]
     Indication: ATRIAL FIBRILLATION
     Dosage: UNIT DOSE: 75 MG
     Route: 048
     Dates: start: 20030701, end: 20051001
  4. ADVAIR DISKUS 100/50 [Concomitant]
     Dosage: 1 PUFF QID
  5. TOPROL-XL [Concomitant]
     Indication: HYPERTENSION
  6. LANOXIN [Concomitant]
     Route: 048
  7. DIOVAN [Concomitant]
     Route: 048
  8. LORTAB [Concomitant]
     Indication: PAIN
  9. IMODIUM [Concomitant]
  10. ARICEPT [Concomitant]
  11. CARDIZEM [Concomitant]
  12. ASPIRIN [Concomitant]
  13. ESTROGENS CONJUGATED [Concomitant]
  14. LODINE [Concomitant]
  15. PROCARDIA [Concomitant]
  16. FOLIC ACID [Concomitant]
  17. MULTI-VITAMINS [Concomitant]
  18. SIMVASTATIN [Concomitant]
  19. THIAMINE [Concomitant]
  20. VICODIN [Concomitant]
  21. ATIVAN [Concomitant]

REACTIONS (15)
  - ABASIA [None]
  - AMNESIA [None]
  - ASTHENIA [None]
  - ATRIAL FIBRILLATION [None]
  - CEREBRAL INFARCTION [None]
  - DIZZINESS [None]
  - DYSPNOEA [None]
  - ELECTROCARDIOGRAM Q WAVE ABNORMAL [None]
  - ELECTROCARDIOGRAM QT PROLONGED [None]
  - HEADACHE [None]
  - HYPOAESTHESIA [None]
  - HYPOTENSION [None]
  - OFF LABEL USE [None]
  - PARAESTHESIA [None]
  - SENSORY LOSS [None]
